FAERS Safety Report 14999014 (Version 2)
Quarter: 2019Q3

REPORT INFORMATION
  Report Type: Spontaneous
  Country: GB (occurrence: GB)
  Receive Date: 20180612
  Receipt Date: 20190820
  Transmission Date: 20191004
  Serious: Yes (Death)
  Sender: FDA-Public Use
  Company Number: GB-TEVA-2018-GB-904902

PATIENT
  Age: 4 Day
  Sex: Male

DRUGS (1)
  1. OMEPRAZOLE DELAYED RELEASE CAPSULES,10 MG, 20 MG AND 30 MG [Suspect]
     Active Substance: OMEPRAZOLE
     Indication: DYSPEPSIA
     Route: 064
     Dates: start: 20171216

REACTIONS (2)
  - Death neonatal [Fatal]
  - Maternal exposure during pregnancy [Fatal]

NARRATIVE: CASE EVENT DATE: 20180212
